FAERS Safety Report 9103020 (Version 2)
Quarter: 2013Q1

REPORT INFORMATION
  Report Type: Spontaneous
  Country: US (occurrence: US)
  Receive Date: 20130219
  Receipt Date: 20130307
  Transmission Date: 20140127
  Serious: No
  Sender: FDA-Public Use
  Company Number: US-009507513-1302USA007749

PATIENT
  Age: 53 Year
  Sex: Male

DRUGS (3)
  1. PEGINTRON [Suspect]
     Indication: HEPATITIS C
     Dosage: 120 MICROGRAM, QW
     Route: 058
     Dates: start: 20130130
  2. RIBAVIRIN [Suspect]
     Indication: HEPATITIS C
     Dosage: UNK
     Route: 048
     Dates: start: 20130131
  3. TELAVIC [Suspect]
     Indication: HEPATITIS C
     Dosage: UNK
     Dates: start: 20130131

REACTIONS (15)
  - Mental status changes [Unknown]
  - Asthenia [Unknown]
  - Nausea [Recovering/Resolving]
  - Malaise [Unknown]
  - Influenza like illness [Unknown]
  - Dry mouth [Recovering/Resolving]
  - Aphagia [Recovering/Resolving]
  - Cold sweat [Recovering/Resolving]
  - Chills [Recovering/Resolving]
  - Visual acuity reduced [Recovering/Resolving]
  - Abdominal pain [Recovering/Resolving]
  - Micturition disorder [Recovering/Resolving]
  - Fatigue [Recovering/Resolving]
  - Drug dose omission [Unknown]
  - Device leakage [Unknown]
